FAERS Safety Report 9370170 (Version 2)
Quarter: 2015Q1

REPORT INFORMATION
  Report Type: Spontaneous
  Country: US (occurrence: None)
  Receive Date: 20130624
  Receipt Date: 20150226
  Transmission Date: 20150721
  Serious: Yes (Hospitalization)
  Sender: FDA-Public Use
  Company Number: THQ2013A04569

PATIENT
  Age: 84 Year
  Sex: Female

DRUGS (5)
  1. ADVIL [Suspect]
     Active Substance: IBUPROFEN
     Indication: ARTHRITIS
  2. ADVIL [Suspect]
     Active Substance: IBUPROFEN
     Indication: SPONDYLITIS
  3. ALEVE [Suspect]
     Active Substance: NAPROXEN SODIUM
     Indication: SPONDYLITIS
  4. ALEVE [Suspect]
     Active Substance: NAPROXEN SODIUM
     Indication: ARTHRITIS
  5. LANSOPRAZOLE (LANSOPRAZOLE) UNKNOWN [Suspect]
     Active Substance: LANSOPRAZOLE
     Dates: end: 20130525

REACTIONS (16)
  - Foot deformity [None]
  - Food poisoning [None]
  - Dyspnoea [None]
  - Rash [None]
  - Oral mucosal exfoliation [None]
  - Staphylococcal infection [None]
  - Nerve compression [None]
  - Pneumothorax [None]
  - Drug ineffective [None]
  - Malaise [None]
  - Dehydration [None]
  - Arthritis [None]
  - Pneumonia [None]
  - Chronic obstructive pulmonary disease [None]
  - Choking [None]
  - Peripheral swelling [None]

NARRATIVE: CASE EVENT DATE: 20101107
